FAERS Safety Report 9525500 (Version 1)
Quarter: 2013Q3

REPORT INFORMATION
  Report Type: Spontaneous
  Country: US (occurrence: US)
  Receive Date: 20130916
  Receipt Date: 20130916
  Transmission Date: 20140515
  Serious: Yes (Death)
  Sender: FDA-Public Use
  Company Number: US-BAYER-2013-109653

PATIENT
  Sex: Female

DRUGS (2)
  1. YAZ [Suspect]
     Dosage: UNK
     Dates: start: 2008
  2. YASMIN [Suspect]
     Dosage: UNK
     Dates: start: 2008

REACTIONS (6)
  - Pulmonary embolism [Fatal]
  - Anxiety [None]
  - Injury [Fatal]
  - Pain [None]
  - Quality of life decreased [None]
  - Pain [Fatal]
